FAERS Safety Report 11037032 (Version 1)
Quarter: 2015Q2

REPORT INFORMATION
  Report Type: Spontaneous
  Country: US (occurrence: None)
  Receive Date: 20150415
  Receipt Date: 20150415
  Transmission Date: 20150821
  Serious: Yes (Hospitalization, Other)
  Sender: FDA-Public Use
  Company Number: None

PATIENT
  Age: 30 Year
  Sex: Female
  Weight: 117.94 kg

DRUGS (7)
  1. BUPROPION HCL [Suspect]
     Active Substance: BUPROPION HYDROCHLORIDE
     Indication: EX-TOBACCO USER
     Route: 048
     Dates: start: 20140402, end: 20140403
  2. ISENTRAS [Concomitant]
  3. TRUVADA [Concomitant]
     Active Substance: EMTRICITABINE\TENOFOVIR DISOPROXIL FUMARATE
  4. PRENATAL VITAMINS [Concomitant]
     Active Substance: VITAMINS
  5. PROGERSTERONE [Concomitant]
  6. TYLENOL WITH CODEINE [Concomitant]
     Active Substance: ACETAMINOPHEN\CODEINE PHOSPHATE
  7. INDOCIN [Concomitant]
     Active Substance: INDOMETHACIN\INDOMETHACIN SODIUM

REACTIONS (7)
  - Amniotic fluid volume decreased [None]
  - Abortion spontaneous [None]
  - Vaginal discharge [None]
  - Drug screen positive [None]
  - Premature rupture of membranes [None]
  - Drug dose omission [None]
  - Maternal exposure during pregnancy [None]

NARRATIVE: CASE EVENT DATE: 20150410
